FAERS Safety Report 4350298-3 (Version None)
Quarter: 2004Q2

REPORT INFORMATION
  Report Type: 
  Country: None (occurrence: None)
  Receive Date: 20040429
  Receipt Date: 20030507
  Transmission Date: 20050107
  Serious: Yes (Hospitalization, Other)
  Sender: FDA-Public Use
  Company Number: US-MERCK-0305USA01301

PATIENT
  Age: 49 Year
  Sex: Male

DRUGS (7)
  1. VICODIN ES [Concomitant]
     Route: 065
  2. ASPIRIN [Concomitant]
     Route: 065
  3. ATENOLOL [Concomitant]
     Route: 065
  4. PRILOSEC [Concomitant]
     Route: 065
  5. ZOCOR [Suspect]
     Route: 048
     Dates: start: 19980701, end: 19980901
  6. ZOCOR [Suspect]
     Route: 048
     Dates: start: 19990301, end: 20010301
  7. ZOCOR [Suspect]
     Route: 048
     Dates: end: 20020601

REACTIONS (7)
  - ARTHRALGIA [None]
  - JOINT CREPITATION [None]
  - MUSCLE SPASMS [None]
  - MUSCULAR WEAKNESS [None]
  - MUSCULOSKELETAL STIFFNESS [None]
  - MYOSITIS [None]
  - RHABDOMYOLYSIS [None]
